FAERS Safety Report 7681484-2 (Version None)
Quarter: 2011Q3

REPORT INFORMATION
  Report Type: 
  Country: None (occurrence: None)
  Receive Date: 20110812
  Receipt Date: 20110805
  Transmission Date: 20111222
  Serious: Yes (Hospitalization)
  Sender: FDA-Public Use
  Company Number: NL-BAXTER-2011BH025856

PATIENT
  Age: 65 Year
  Sex: Female

DRUGS (3)
  1. GAMMAGARD LIQUID [Suspect]
     Route: 042
     Dates: start: 20101028
  2. GAMMAGARD LIQUID [Suspect]
     Indication: PRODUCT USED FOR UNKNOWN INDICATION
     Route: 042
     Dates: start: 20110714
  3. GAMMAGARD LIQUID [Suspect]

REACTIONS (4)
  - DIZZINESS [None]
  - NAUSEA [None]
  - MALAISE [None]
  - MENINGITIS [None]
